FAERS Safety Report 7112211-5 (Version None)
Quarter: 2010Q4

REPORT INFORMATION
  Report Type: 
  Country: None (occurrence: None)
  Receive Date: 20101119
  Receipt Date: 20100310
  Transmission Date: 20110411
  Serious: No
  Sender: FDA-Public Use
  Company Number: A0849511A

PATIENT
  Age: 66 Year
  Sex: Male

DRUGS (13)
  1. AVODART [Suspect]
     Indication: BENIGN PROSTATIC HYPERPLASIA
     Dosage: 5MG PER DAY
     Route: 048
     Dates: start: 20040901, end: 20100310
  2. DIAZEPAM [Concomitant]
  3. FEXOFENADINE HCL [Concomitant]
  4. ENALAPRIL MALEATE [Concomitant]
  5. ZYRTEC [Concomitant]
  6. XYZAL [Concomitant]
  7. SULFAMETHOXAZOLE [Concomitant]
  8. CLINDAMYCIN [Concomitant]
  9. CLOBETASOL PROPIONATE [Concomitant]
  10. UNKNOWN MEDICATION [Concomitant]
  11. UNKNOWN MEDICATION [Concomitant]
  12. UNKNOWN MEDICATION [Concomitant]
  13. BETAMETHASONE VALERATE [Concomitant]

REACTIONS (2)
  - FUNGAL INFECTION [None]
  - RASH [None]
